FAERS Safety Report 21343372 (Version 1)
Quarter: 2022Q3

REPORT INFORMATION
  Report Type: Spontaneous
  Country: DK (occurrence: DK)
  Receive Date: 20220916
  Receipt Date: 20220916
  Transmission Date: 20221027
  Serious: Yes (Hospitalization)
  Sender: FDA-Public Use
  Company Number: None

PATIENT
  Age: 75 Year
  Sex: Female

DRUGS (3)
  1. PREDNISOLONE [Suspect]
     Active Substance: PREDNISOLONE
     Indication: Polymyalgia rheumatica
     Dosage: DOSE WAS GRADUALLY REDUCED TO 5 MG DAILY IN DEC2019. STRENGHTH: UNKNOWN
     Route: 065
     Dates: start: 201903
  2. PREDNISOLONE [Suspect]
     Active Substance: PREDNISOLONE
     Dosage: DOSE WAS INCREASED FROM 15 MG TO 25 MG IN JAN2019. STRENGHTH: UNKNOWN , FREQUENCY TIME : 1 DAY
     Route: 065
     Dates: start: 2018
  3. PREDNISOLONE [Suspect]
     Active Substance: PREDNISOLONE
     Dosage: DOSE WAS REDUCED FROM 25 MG TO 15 MG AFTER 3 DAYS. STRENGHTH: UNKNOWN , FREQUENCY TIME : 1 DAY
     Route: 065
     Dates: start: 201901

REACTIONS (10)
  - Hypertension [Unknown]
  - Epistaxis [Unknown]
  - Cataract [Unknown]
  - Hiatus hernia [Recovered/Resolved]
  - Appendicitis [Recovered/Resolved]
  - Skin ulcer [Unknown]
  - Tooth injury [Unknown]
  - Cardiac failure [Unknown]
  - Weight increased [Unknown]
  - Oedema [Recovering/Resolving]

NARRATIVE: CASE EVENT DATE: 20190101
